FAERS Safety Report 5341419-4 (Version None)
Quarter: 2007Q2

REPORT INFORMATION
  Report Type: 
  Country: None (occurrence: None)
  Receive Date: 20070530
  Receipt Date: 20070514
  Transmission Date: 20071010
  Serious: Yes (Death)
  Sender: FDA-Public Use
  Company Number: 2007JP002140

PATIENT
  Age: 47 Year
  Sex: Male

DRUGS (10)
  1. PROGRAF [Suspect]
     Indication: HISTIOCYTOSIS HAEMATOPHAGIC
  2. FAMOTIDINE [Concomitant]
  3. PREDNISOLONE [Concomitant]
  4. METHYLPREDNISOLONE [Concomitant]
  5. ETOPOSIDE [Concomitant]
  6. CYCLOPHOSPHAMIDE [Concomitant]
  7. DOXORUBICIN HCL [Concomitant]
  8. VINCRISTINE [Concomitant]
  9. CYCLOSPORINE [Concomitant]
  10. RITUXIMAB (RITUXIMAB) [Concomitant]

REACTIONS (8)
  - ASCITES [None]
  - CONDITION AGGRAVATED [None]
  - HEPATIC FAILURE [None]
  - HISTIOCYTOSIS HAEMATOPHAGIC [None]
  - NO THERAPEUTIC RESPONSE [None]
  - PLEURAL EFFUSION [None]
  - PNEUMONIA BACTERIAL [None]
  - VENOOCCLUSIVE DISEASE [None]
